FAERS Safety Report 15533674 (Version 2)
Quarter: 2020Q4

REPORT INFORMATION
  Report Type: Report from Study
  Country: FR (occurrence: FR)
  Receive Date: 20181019
  Receipt Date: 20201106
  Transmission Date: 20210113
  Serious: Yes (Hospitalization)
  Sender: FDA-Public Use
  Company Number: FR-PFIZER INC-2018419661

PATIENT
  Age: 83 Year
  Sex: Male
  Weight: 69 kg

DRUGS (8)
  1. AFLIBERCEPT [Suspect]
     Active Substance: AFLIBERCEPT
     Indication: COLORECTAL CANCER METASTATIC
     Dosage: UNK, QCY (CYCLIC)
     Route: 042
     Dates: start: 20180627, end: 20180627
  2. FLUOROURACIL. [Suspect]
     Active Substance: FLUOROURACIL
     Dosage: UNK UNK, QCY (CYCLIC)
     Route: 041
     Dates: start: 20180627, end: 20180627
  3. FLUOROURACIL. [Suspect]
     Active Substance: FLUOROURACIL
     Dosage: 750 MG, QCY (CYCLIC) (5FU CONTINUED AT A DOSE OF 4450 MG)
     Route: 040
     Dates: start: 20180906, end: 20180906
  4. FLUOROURACIL. [Suspect]
     Active Substance: FLUOROURACIL
     Dosage: UNK UNK, QCY (CYCLIC)
     Route: 041
     Dates: start: 20180906, end: 20180906
  5. CALCIUM FOLINATE [Suspect]
     Active Substance: LEUCOVORIN CALCIUM
     Dosage: 744 MG, QCY (CYCLIC)
     Route: 042
     Dates: start: 20180906, end: 20180906
  6. FLUOROURACIL. [Suspect]
     Active Substance: FLUOROURACIL
     Indication: COLORECTAL CANCER METASTATIC
     Dosage: UNK UNK, QCY (CYCLIC)
     Route: 040
     Dates: start: 20180627, end: 20180627
  7. AFLIBERCEPT [Suspect]
     Active Substance: AFLIBERCEPT
     Dosage: 287 MG, QCY (CYCLIC)
     Route: 042
     Dates: start: 20180906, end: 20180906
  8. CALCIUM FOLINATE [Suspect]
     Active Substance: LEUCOVORIN CALCIUM
     Indication: COLORECTAL CANCER METASTATIC
     Dosage: UNK UNK, QCY (CYCLIC)
     Route: 042
     Dates: start: 20180627, end: 20180627

REACTIONS (3)
  - Disorientation [Recovered/Resolved]
  - Confusional state [Recovered/Resolved]
  - Agitation [Recovered/Resolved]

NARRATIVE: CASE EVENT DATE: 20180907
